FAERS Safety Report 10286027 (Version 3)
Quarter: 2014Q3

REPORT INFORMATION
  Report Type: Report from Study
  Country: US (occurrence: None)
  Receive Date: 20140703
  Receipt Date: 20140721
  Transmission Date: 20150326
  Serious: Yes (Congenital Anomaly, Other)
  Sender: FDA-Public Use
  Company Number: AUR-APL-2014-06972

PATIENT

DRUGS (5)
  1. LAMIVUDINE AND ZIDOVUDINE [Suspect]
     Active Substance: LAMIVUDINE\ZIDOVUDINE
     Indication: ANTIRETROVIRAL THERAPY
     Dosage: 2 DF, UNK, TRANSPLACENTAL
     Route: 064
     Dates: start: 20120810, end: 20130621
  2. KALETRA [Suspect]
     Active Substance: LOPINAVIR\RITONAVIR
     Indication: ANTIRETROVIRAL THERAPY
     Dosage: 4 DF, UNK, TRANSPLACENTAL
     Route: 064
     Dates: start: 20120810
  3. LAMIVUDINE AND ZIDOVUDINE [Suspect]
     Active Substance: LAMIVUDINE\ZIDOVUDINE
     Indication: ANTIRETROVIRAL THERAPY
     Dosage: 900 MG, DAILY, TRANSPLACENTAL
     Route: 064
     Dates: start: 20130624
  4. LAMIVUDINE. [Suspect]
     Active Substance: LAMIVUDINE
     Indication: ANTIRETROVIRAL THERAPY
     Route: 064
     Dates: start: 20130621, end: 20130624
  5. ZIDOVUDINE. [Suspect]
     Active Substance: ZIDOVUDINE
     Indication: ANTIRETROVIRAL THERAPY
     Dosage: 600 MG/KG, EVERY HOUR, TRANSPLACENTAL ?
     Route: 064
     Dates: start: 20130621, end: 20130624

REACTIONS (9)
  - Congenital central nervous system anomaly [None]
  - Anencephaly [None]
  - Maternal drugs affecting foetus [None]
  - Hydrocephalus [None]
  - Meningomyelocele [None]
  - Spina bifida [None]
  - Neural tube defect [None]
  - Arnold-Chiari malformation [None]
  - Foetal exposure during pregnancy [None]
